FAERS Safety Report 9298701 (Version 1)
Quarter: 2013Q2

REPORT INFORMATION
  Report Type: Report from Study
  Country: US (occurrence: US)
  Receive Date: 20130517
  Receipt Date: 20130517
  Transmission Date: 20140414
  Serious: Yes (Other)
  Sender: FDA-Public Use
  Company Number: US-RB-014430-10

PATIENT
  Age: 47 Year
  Sex: Female

DRUGS (4)
  1. SUBOXONE FILM [Suspect]
     Dosage: SUBOXONE FILM
     Route: 060
     Dates: start: 2011
  2. SUBOXONE FILM [Suspect]
     Indication: DRUG DEPENDENCE
     Dosage: SUBOXONE FILM
     Route: 060
  3. SUBOXONE TABLET [Suspect]
     Indication: DRUG DEPENDENCE
     Route: 060
     Dates: start: 2010, end: 2011
  4. SUBOXONE TABLET [Suspect]
     Route: 060

REACTIONS (10)
  - Neoplasm malignant [Not Recovered/Not Resolved]
  - Drug withdrawal syndrome [Recovered/Resolved]
  - Acarodermatitis [Not Recovered/Not Resolved]
  - Fall [Recovered/Resolved]
  - Blood pressure increased [Not Recovered/Not Resolved]
  - Formication [Not Recovered/Not Resolved]
  - Insomnia [Recovering/Resolving]
  - Nervousness [Recovering/Resolving]
  - Muscle spasms [Not Recovered/Not Resolved]
  - Malnutrition [Recovering/Resolving]
